FAERS Safety Report 4962195-0 (Version None)
Quarter: 2006Q1

REPORT INFORMATION
  Report Type: 
  Country: None (occurrence: None)
  Receive Date: 20060329
  Receipt Date: 20060322
  Transmission Date: 20060701
  Serious: Yes (Hospitalization)
  Sender: FDA-Public Use
  Company Number: WAES 0603USA03508

PATIENT
  Age: 57 Year
  Sex: Male

DRUGS (6)
  1. DECADRON [Suspect]
     Dosage: SEE IMAGE, PO
     Route: 048
     Dates: start: 20051123, end: 20051130
  2. DECADRON [Suspect]
     Dosage: SEE IMAGE, PO
     Route: 048
     Dates: start: 20051201, end: 20051213
  3. DECADRON [Suspect]
     Dosage: SEE IMAGE, PO
     Route: 048
     Dates: start: 20051214
  4. STUDY DRUG (UNSPECIFIED) [Suspect]
     Indication: GLIOBLASTOMA MULTIFORME
     Dates: start: 20050607
  5. COUMADIN [Concomitant]
  6. KEPPRA [Concomitant]

REACTIONS (8)
  - BRONCHITIS [None]
  - CARDIAC FAILURE CONGESTIVE [None]
  - CHILLS [None]
  - CONFUSIONAL STATE [None]
  - COUGH [None]
  - DYSPNOEA [None]
  - LUNG INFILTRATION [None]
  - PNEUMOCYSTIS JIROVECI PNEUMONIA [None]
